FAERS Safety Report 4921022-8 (Version None)
Quarter: 2006Q1

REPORT INFORMATION
  Report Type: 
  Country: None (occurrence: None)
  Receive Date: 20060223
  Receipt Date: 20060215
  Transmission Date: 20060701
  Serious: Yes (Hospitalization)
  Sender: FDA-Public Use
  Company Number: GB-MERCK-0602GBR00089

PATIENT
  Age: 75 Year
  Sex: Male

DRUGS (10)
  1. INVANZ [Suspect]
     Indication: WOUND INFECTION
     Route: 042
     Dates: start: 20051221, end: 20051231
  2. INSULIN HUMAN [Concomitant]
     Indication: DIABETES MELLITUS INSULIN-DEPENDENT
     Route: 058
  3. AMIODARONE [Concomitant]
     Route: 048
  4. AMITRIPTYLINE HYDROCHLORIDE [Concomitant]
     Route: 048
  5. METFORMIN [Concomitant]
     Route: 048
  6. FUROSEMIDE [Concomitant]
     Route: 048
  7. ROSUVASTATIN CALCIUM [Concomitant]
     Route: 048
  8. ESOMEPRAZOLE [Concomitant]
     Route: 048
  9. GABAPENTIN [Concomitant]
     Route: 048
  10. MEROPENEM [Concomitant]
     Indication: SEPSIS
     Route: 048
     Dates: start: 20051214, end: 20051221

REACTIONS (4)
  - CONFUSIONAL STATE [None]
  - DIZZINESS [None]
  - INTENTION TREMOR [None]
  - NYSTAGMUS [None]
